FAERS Safety Report 9976289 (Version 4)
Quarter: 2014Q2

REPORT INFORMATION
  Report Type: Report from Study
  Country: CZ (occurrence: CZ)
  Receive Date: 20140306
  Receipt Date: 20140606
  Transmission Date: 20141212
  Serious: Yes (Hospitalization)
  Sender: FDA-Public Use
  Company Number: CZ-ABBVIE-14P-217-1206262-00

PATIENT
  Age: 38 Year
  Sex: Male
  Weight: 76 kg

DRUGS (10)
  1. HUMIRA [Suspect]
     Indication: CROHN^S DISEASE
     Route: 058
     Dates: start: 20131015, end: 20131015
  2. HUMIRA [Suspect]
     Route: 058
     Dates: start: 20131029, end: 20131029
  3. HUMIRA [Suspect]
     Route: 058
     Dates: start: 20131112
  4. PREDNISONE [Suspect]
     Indication: CROHN^S DISEASE
     Dosage: TAPER
     Route: 048
     Dates: start: 20130917, end: 20130927
  5. PREDNISONE [Suspect]
     Route: 048
     Dates: start: 20130928, end: 20131029
  6. PREDNISONE [Suspect]
     Route: 048
     Dates: start: 20131030, end: 20131105
  7. PREDNISONE [Suspect]
     Route: 048
     Dates: start: 20131106, end: 20131112
  8. PREDNISONE [Suspect]
     Route: 048
     Dates: start: 20131113
  9. PENTASA [Concomitant]
     Indication: CROHN^S DISEASE
     Dates: start: 20121101
  10. ACIDUM FOLICUM [Concomitant]
     Indication: CROHN^S DISEASE
     Dates: start: 20130701

REACTIONS (1)
  - Pulmonary tuberculosis [Not Recovered/Not Resolved]
